FAERS Safety Report 8109474-6 (Version None)
Quarter: 2012Q1

REPORT INFORMATION
  Report Type: 
  Country: None (occurrence: None)
  Receive Date: 20120202
  Receipt Date: 20120111
  Transmission Date: 20120608
  Serious: No
  Sender: FDA-Public Use
  Company Number: US-AMGEN-USASP2012002188

PATIENT
  Age: 53 Year
  Sex: Female

DRUGS (7)
  1. ENBREL [Suspect]
     Indication: PRODUCT USED FOR UNKNOWN INDICATION
     Dosage: 50 MG, QWK
     Route: 058
  2. LEVOTHYROXINE SODIUM [Concomitant]
     Dosage: 25 MUG, UNK
  3. ACETAMINOPHEN [Concomitant]
     Dosage: 500 MG, UNK
  4. VITAMIN D [Concomitant]
  5. VITAMIN B-12 [Concomitant]
     Dosage: 1000 UNK, UNK
  6. ALLEGRA [Concomitant]
     Dosage: 30 MG, UNK
  7. PENTASA [Concomitant]
     Dosage: 250 MG, UNK

REACTIONS (5)
  - COUGH [None]
  - INJECTION SITE SWELLING [None]
  - INJECTION SITE PRURITUS [None]
  - INJECTION SITE ERYTHEMA [None]
  - SINUS CONGESTION [None]
